FAERS Safety Report 7290812-1 (Version None)
Quarter: 2011Q1

REPORT INFORMATION
  Report Type: 
  Country: None (occurrence: None)
  Receive Date: 20110214
  Receipt Date: 20110202
  Transmission Date: 20110831
  Serious: Yes (Death)
  Sender: FDA-Public Use
  Company Number: DE-ROCHE-759368

PATIENT
  Sex: Female

DRUGS (2)
  1. CAPECITABINE [Suspect]
     Route: 048
     Dates: start: 20090209, end: 20090403
  2. BONDRONAT [Concomitant]
     Route: 042
     Dates: start: 20090209, end: 20090604

REACTIONS (1)
  - NEOPLASM MALIGNANT [None]
